FAERS Safety Report 10178202 (Version 1)
Quarter: 2014Q2

REPORT INFORMATION
  Report Type: Spontaneous
  Country: US (occurrence: None)
  Receive Date: 20140516
  Receipt Date: 20140516
  Transmission Date: 20141212
  Serious: Yes (Death)
  Sender: FDA-Public Use
  Company Number: None

PATIENT
  Age: 29 Year
  Sex: Female

DRUGS (4)
  1. CAPECITABINE [Suspect]
     Indication: PRODUCT USED FOR UNKNOWN INDICATION
     Route: 048
     Dates: start: 20140420
  2. XELODA [Suspect]
     Route: 048
     Dates: start: 20140101, end: 20140419
  3. PERCOCET [Concomitant]
  4. VICODIN [Concomitant]

REACTIONS (1)
  - Death [None]
